FAERS Safety Report 22279523 (Version 1)
Quarter: 2023Q2

REPORT INFORMATION
  Report Type: Spontaneous
  Country: US (occurrence: None)
  Receive Date: 20230502
  Receipt Date: 20230502
  Transmission Date: 20230722
  Serious: Yes (Hospitalization)
  Sender: FDA-Public Use
  Company Number: None

PATIENT
  Age: 80 Year
  Sex: Female
  Weight: 72.45 kg

DRUGS (1)
  1. OXALIPLATIN [Suspect]
     Active Substance: OXALIPLATIN
     Indication: Colon cancer
     Dosage: 240 MG : Q3W INTRAMUSCULAR DRIP?
     Route: 041
     Dates: start: 20230217

REACTIONS (8)
  - Stridor [None]
  - Wheezing [None]
  - Infusion related reaction [None]
  - Movement disorder [None]
  - Blood pressure increased [None]
  - Vision blurred [None]
  - Dry mouth [None]
  - Eye movement disorder [None]

NARRATIVE: CASE EVENT DATE: 20230414
